FAERS Safety Report 9783426 (Version 2)
Quarter: 2014Q1

REPORT INFORMATION
  Report Type: Spontaneous
  Country: BR (occurrence: BR)
  Receive Date: 20131226
  Receipt Date: 20140304
  Transmission Date: 20141002
  Serious: Yes (Life-Threatening)
  Sender: FDA-Public Use
  Company Number: PHHY2013BR151212

PATIENT
  Age: 15 Year
  Sex: Male

DRUGS (6)
  1. TEGRETOL [Suspect]
     Indication: CEREBRAL PALSY
     Dosage: 2 DF (1 TABLET IN MORNING AND 1 AT NIGHT)
     Route: 048
     Dates: start: 201001, end: 201007
  2. TEGRETOL [Suspect]
     Indication: CONVULSION
     Dosage: 4 DF (2 TABLETS IN MORNING AND 2 AT NIGHT)
     Route: 048
     Dates: start: 201307, end: 201312
  3. CARBAMAZEPINE [Suspect]
     Indication: CEREBRAL PALSY
     Dosage: 2 TABLETS AT NIGHT
     Route: 048
     Dates: start: 201312
  4. CARBAMAZEPINE [Suspect]
     Indication: CONVULSION
  5. TEGRETOL [Suspect]
     Indication: CEREBRAL PALSY
     Dosage: 2 DF, IN THE MORNING
     Route: 048
     Dates: start: 201312
  6. TEGRETOL [Suspect]
     Indication: CONVULSION

REACTIONS (3)
  - Epilepsy [Recovered/Resolved]
  - Anxiety [Recovered/Resolved]
  - Convulsion [Recovered/Resolved]
